FAERS Safety Report 23954176 (Version 1)
Quarter: 2024Q2

REPORT INFORMATION
  Report Type: Report from Study
  Country: US (occurrence: US)
  Receive Date: 20240609
  Receipt Date: 20240609
  Transmission Date: 20240717
  Serious: Yes (Hospitalization)
  Sender: FDA-Public Use
  Company Number: US-ABBVIE-5787561

PATIENT
  Sex: Female

DRUGS (3)
  1. RINVOQ [Suspect]
     Active Substance: UPADACITINIB
     Indication: Colitis ulcerative
     Dosage: START DATE : 2024
     Route: 048
  2. RINVOQ [Suspect]
     Active Substance: UPADACITINIB
     Indication: Colitis ulcerative
     Dosage: DISCONTINUED IN 2024
     Route: 048
     Dates: start: 20240119
  3. RINVOQ [Suspect]
     Active Substance: UPADACITINIB
     Indication: Colitis ulcerative
     Dosage: START DATE, END DATE : 2024
     Route: 048

REACTIONS (10)
  - Inflammatory marker increased [Unknown]
  - Anxiety [Unknown]
  - Blood iron decreased [Unknown]
  - Psoriatic arthropathy [Not Recovered/Not Resolved]
  - Frequent bowel movements [Not Recovered/Not Resolved]
  - Hypoacusis [Unknown]
  - Dizziness [Unknown]
  - Palpitations [Unknown]
  - Anaemia [Unknown]
  - Arthralgia [Recovered/Resolved]

NARRATIVE: CASE EVENT DATE: 20240101
